FAERS Safety Report 20092498 (Version 3)
Quarter: 2022Q1

REPORT INFORMATION
  Report Type: Report from Study
  Country: NZ (occurrence: NZ)
  Receive Date: 20211119
  Receipt Date: 20220125
  Transmission Date: 20220423
  Serious: Yes (Hospitalization)
  Sender: FDA-Public Use
  Company Number: NZ-ABBVIE-21P-118-4160489-00

PATIENT
  Age: 79 Year
  Sex: Female
  Weight: 48.5 kg

DRUGS (15)
  1. IBRUTINIB [Suspect]
     Active Substance: IBRUTINIB
     Indication: Chronic lymphocytic leukaemia
     Route: 048
     Dates: start: 20190719, end: 20211109
  2. ZOPICLONE [Concomitant]
     Active Substance: ZOPICLONE
     Indication: Insomnia
     Dosage: 3.75-7.5 MG, NOCTE PRN
     Route: 048
     Dates: start: 200905
  3. ZOPICLONE [Concomitant]
     Active Substance: ZOPICLONE
     Indication: Product used for unknown indication
     Dosage: HALF TABLET BEFORE BED
  4. BUDESONIDE + EFORMOTEROL [Concomitant]
     Indication: Chronic obstructive pulmonary disease
     Dosage: BUDESONIDE 200MG + EFORMOTEROL 6MCG
     Route: 055
     Dates: start: 20130618
  5. ATORVASTATIN [Concomitant]
     Active Substance: ATORVASTATIN
     Indication: Hypercholesterolaemia
     Route: 048
     Dates: start: 201111
  6. VITAMIN C [Concomitant]
     Active Substance: ASCORBIC ACID
     Indication: Nutritional supplementation
     Route: 048
     Dates: start: 1995
  7. VITAMIN D3 [Concomitant]
     Active Substance: CHOLECALCIFEROL
     Indication: Vitamin D deficiency
     Route: 048
     Dates: start: 20130717
  8. BLACKMORE^S GLUCOSAMINE [Concomitant]
     Indication: Prophylaxis
     Route: 048
     Dates: start: 1995
  9. MAGNESIUM [Concomitant]
     Active Substance: MAGNESIUM
     Indication: Muscle spasms
     Route: 048
     Dates: start: 2009
  10. HEALTHERIES 50 PLUS MULTI TABLET [Concomitant]
     Indication: Prophylaxis
     Route: 048
     Dates: start: 1992
  11. OMEPRAZOLE [Concomitant]
     Active Substance: OMEPRAZOLE
     Indication: Prophylaxis
     Route: 048
     Dates: start: 20211105, end: 20211109
  12. PREDNISONE [Concomitant]
     Active Substance: PREDNISONE
     Indication: Dyspnoea
     Route: 048
     Dates: start: 20211105, end: 20211109
  13. ACETAMINOPHEN [Concomitant]
     Active Substance: ACETAMINOPHEN
     Indication: Pain
     Dosage: 2 TABLETS FOR 4 TIMES DAILY
     Route: 048
  14. ACETAMINOPHEN [Concomitant]
     Active Substance: ACETAMINOPHEN
     Indication: Pyrexia
  15. GLYCOPYRROLATE [Concomitant]
     Active Substance: GLYCOPYRROLATE
     Indication: Cough
     Dosage: POWDER FOR CAPSULE
     Route: 055

REACTIONS (3)
  - Hypervolaemia [Recovered/Resolved]
  - Pericardial effusion [Recovered/Resolved]
  - Atrial fibrillation [Recovered/Resolved]

NARRATIVE: CASE EVENT DATE: 20211109
